FAERS Safety Report 4867201-X (Version None)
Quarter: 2005Q4

REPORT INFORMATION
  Report Type: 
  Country: None (occurrence: None)
  Receive Date: 20051227
  Receipt Date: 20051227
  Transmission Date: 20060501
  Serious: Yes (Hospitalization)
  Sender: FDA-Public Use
  Company Number: None

PATIENT
  Age: 43 Year
  Sex: Male
  Weight: 99.5 kg

DRUGS (2)
  1. ALEVE [Suspect]
  2. CYCLOBENZAPRINE HCL [Concomitant]

REACTIONS (3)
  - DYSPNOEA [None]
  - HYPOTENSION [None]
  - PRURITUS [None]
